FAERS Safety Report 18585552 (Version 1)
Quarter: 2020Q4

REPORT INFORMATION
  Report Type: Spontaneous
  Country: US (occurrence: US)
  Receive Date: 20201205
  Receipt Date: 20201205
  Transmission Date: 20210114
  Serious: Yes (Disabling)
  Sender: FDA-Public Use
  Company Number: None

PATIENT
  Age: 90 Year
  Sex: Male
  Weight: 62.55 kg

DRUGS (14)
  1. PRIMIDONE. [Suspect]
     Active Substance: PRIMIDONE
     Indication: TREMOR
     Dosage: ?          QUANTITY:1 TABLET(S);?
     Route: 048
     Dates: start: 20201122, end: 20201126
  2. DONEPEZIL. [Concomitant]
     Active Substance: DONEPEZIL
  3. ACEBUTOLOL [Concomitant]
     Active Substance: ACEBUTOLOL
  4. PRESERVISION EYE VITAMINS [Concomitant]
  5. VITAMIN D3 [Concomitant]
     Active Substance: CHOLECALCIFEROL
  6. GABAPENTIN. [Concomitant]
     Active Substance: GABAPENTIN
  7. 81 MG ASPIRIN [Concomitant]
     Active Substance: ASPIRIN
  8. HCTZ [Concomitant]
     Active Substance: HYDROCHLOROTHIAZIDE
  9. LATANOPROST EYE DROPS [Concomitant]
     Active Substance: LATANOPROST
  10. LOSARTAN. [Concomitant]
     Active Substance: LOSARTAN
  11. VITAMIN B12 [Concomitant]
     Active Substance: CYANOCOBALAMIN
  12. TIMOLOL EYE DROPS [Concomitant]
  13. SYNTHROID [Concomitant]
     Active Substance: LEVOTHYROXINE SODIUM
  14. RISPERIDONE. [Concomitant]
     Active Substance: RISPERIDONE

REACTIONS (4)
  - Therapy cessation [None]
  - Mobility decreased [None]
  - Gait disturbance [None]
  - Fatigue [None]

NARRATIVE: CASE EVENT DATE: 20201122
